FAERS Safety Report 4520664-1 (Version None)
Quarter: 2004Q4

REPORT INFORMATION
  Report Type: 
  Country: None (occurrence: None)
  Receive Date: 20041207
  Receipt Date: 20040309
  Transmission Date: 20050328
  Serious: Yes (Hospitalization, Disabling)
  Sender: FDA-Public Use
  Company Number: FR-MERCK-0403FRA00039

PATIENT
  Age: 52 Year
  Sex: Male
  Weight: 89 kg

DRUGS (7)
  1. ZOCOR [Suspect]
     Indication: CORONARY ARTERY DISEASE
     Route: 048
     Dates: start: 19960101, end: 20030601
  2. ZOCOR [Suspect]
     Route: 048
     Dates: start: 20040315
  3. ZOCOR [Suspect]
     Indication: HYPERCHOLESTEROLAEMIA
     Route: 048
     Dates: start: 19960101, end: 20030601
  4. ZOCOR [Suspect]
     Route: 048
     Dates: start: 20040315
  5. DILTIAZEM HYDROCHLORIDE [Concomitant]
     Indication: CORONARY ARTERY DISEASE
     Route: 048
     Dates: start: 19960101
  6. CLOPIDOGREL BISULFATE [Concomitant]
     Indication: CORONARY ARTERY DISEASE
     Route: 048
     Dates: start: 19960101, end: 20041123
  7. ASPIRIN [Concomitant]
     Indication: CORONARY ARTERY DISEASE
     Route: 048
     Dates: start: 19960101

REACTIONS (1)
  - TENDONITIS [None]
